FAERS Safety Report 10247899 (Version 1)
Quarter: 2014Q2

REPORT INFORMATION
  Report Type: Spontaneous
  Country: US (occurrence: US)
  Receive Date: 20140619
  Receipt Date: 20140619
  Transmission Date: 20141212
  Serious: Yes (Other)
  Sender: FDA-Public Use
  Company Number: US-ACTAVIS-2014-13769

PATIENT
  Age: 63 Year
  Sex: Male

DRUGS (4)
  1. GENTAMICIN SULFATE (UNKNOWN) [Suspect]
     Indication: ENTEROCOCCUS TEST POSITIVE
     Dosage: UNK
     Route: 065
  2. AMPICILLIN W/SULBACTAM             /00892601/ [Concomitant]
     Indication: ENTEROCOCCUS TEST POSITIVE
     Dosage: UNK
     Route: 065
  3. LEVOFLOXACIN [Concomitant]
     Indication: PROSTATITIS
     Dosage: UNK
     Route: 065
  4. DOXYCYCLINE [Concomitant]
     Indication: PROSTATITIS
     Dosage: UNK
     Route: 065

REACTIONS (3)
  - Pathogen resistance [Unknown]
  - Endocarditis enterococcal [Recovered/Resolved]
  - Drug ineffective [Unknown]
